FAERS Safety Report 6327978-3 (Version None)
Quarter: 2009Q3

REPORT INFORMATION
  Report Type: 
  Country: None (occurrence: None)
  Receive Date: 20090825
  Receipt Date: 20081017
  Transmission Date: 20100115
  Serious: No
  Sender: FDA-Public Use
  Company Number: US-ABBOTT-08P-163-0482380-00

PATIENT
  Age: 57 Year
  Sex: Female

DRUGS (3)
  1. SYNTHROID [Suspect]
     Indication: THYROID DISORDER
     Route: 048
     Dates: start: 20050501
  2. SYNTHROID [Suspect]
     Dosage: SUN/MON/TUE
     Route: 048
  3. SYNTHROID [Suspect]

REACTIONS (2)
  - DIZZINESS [None]
  - URTICARIA [None]
